FAERS Safety Report 12978619 (Version 3)
Quarter: 2017Q1

REPORT INFORMATION
  Report Type: Spontaneous
  Country: US (occurrence: US)
  Receive Date: 20161128
  Receipt Date: 20170102
  Transmission Date: 20170428
  Serious: Yes (Other)
  Sender: FDA-Public Use
  Company Number: US-009507513-1611USA008620

PATIENT
  Age: 37 Year
  Sex: Female
  Weight: 101.13 kg

DRUGS (1)
  1. NEXPLANON [Suspect]
     Active Substance: ETONOGESTREL
     Dosage: 1 IMPLANT, UNK
     Route: 059

REACTIONS (4)
  - Unintended pregnancy [Unknown]
  - Vaginal haemorrhage [Unknown]
  - Pregnancy with implant contraceptive [Unknown]
  - Pelvic pain [Unknown]

NARRATIVE: CASE EVENT DATE: 2016
